FAERS Safety Report 6084189-7 (Version None)
Quarter: 2009Q1

REPORT INFORMATION
  Report Type: 
  Country: None (occurrence: None)
  Receive Date: 20090219
  Receipt Date: 20090211
  Transmission Date: 20090719
  Serious: Yes (Other)
  Sender: FDA-Public Use
  Company Number: FR-JNJFOC-20090202953

PATIENT
  Age: 16 Year
  Sex: Female

DRUGS (7)
  1. DURAGESIC-100 [Suspect]
     Route: 062
  2. DURAGESIC-100 [Suspect]
     Route: 062
  3. DURAGESIC-100 [Suspect]
     Route: 062
  4. DURAGESIC-100 [Suspect]
     Indication: CANCER PAIN
     Route: 062
  5. SKENAN [Concomitant]
     Route: 048
  6. SKENAN [Concomitant]
     Dosage: ONE IN THE MORNING AND ONE IN THE EVENING
     Route: 048
  7. ACTISKENAN [Concomitant]
     Route: 065

REACTIONS (5)
  - CONFUSIONAL STATE [None]
  - DEPRESSED LEVEL OF CONSCIOUSNESS [None]
  - MIOSIS [None]
  - OVERDOSE [None]
  - SOMNOLENCE [None]
